FAERS Safety Report 24139318 (Version 1)
Quarter: 2024Q3

REPORT INFORMATION
  Report Type: Spontaneous
  Country: JP (occurrence: JP)
  Receive Date: 20240726
  Receipt Date: 20240726
  Transmission Date: 20241016
  Serious: Yes (Other)
  Sender: STRIDES
  Company Number: JP-STRIDES ARCOLAB LIMITED-2024SP009121

PATIENT
  Age: 18 Year
  Sex: Male

DRUGS (19)
  1. METHOTREXATE [Suspect]
     Active Substance: METHOTREXATE
     Indication: Osteosarcoma
     Dosage: 22.3 GRAM
     Route: 065
  2. POTASSIUM CHLORIDE [Suspect]
     Active Substance: POTASSIUM CHLORIDE
     Indication: Tubulointerstitial nephritis
     Dosage: UNK
     Route: 065
  3. POTASSIUM CHLORIDE [Suspect]
     Active Substance: POTASSIUM CHLORIDE
     Indication: Nephropathy
  4. POTASSIUM CITRATE [Suspect]
     Active Substance: POTASSIUM CITRATE
     Indication: Tubulointerstitial nephritis
     Dosage: UNK
     Route: 065
  5. POTASSIUM CITRATE [Suspect]
     Active Substance: POTASSIUM CITRATE
     Indication: Nephropathy
  6. CISPLATIN [Concomitant]
     Active Substance: CISPLATIN
     Indication: Osteosarcoma
     Dosage: 223 MILLIGRAM
     Route: 065
  7. CISPLATIN [Concomitant]
     Active Substance: CISPLATIN
     Dosage: 160 MILLIGRAM
     Route: 065
  8. CISPLATIN [Concomitant]
     Active Substance: CISPLATIN
     Dosage: 200 MILLIGRAM, IN THE THIRD SESSION
     Route: 065
  9. CISPLATIN [Concomitant]
     Active Substance: CISPLATIN
     Dosage: 175 MILLIGRAM, IN THE FOURTH AND FIFTH SESSIONS
     Route: 065
  10. ADRIAMYCIN [Concomitant]
     Active Substance: DOXORUBICIN HYDROCHLORIDE
     Indication: Osteosarcoma
     Dosage: 55 MILLIGRAM
     Route: 065
  11. ADRIAMYCIN [Concomitant]
     Active Substance: DOXORUBICIN HYDROCHLORIDE
     Dosage: 40 MILLIGRAM
     Route: 065
  12. ADRIAMYCIN [Concomitant]
     Active Substance: DOXORUBICIN HYDROCHLORIDE
     Dosage: 50 MILLIGRAM, IN THE THIRD SESSION
     Route: 065
  13. ADRIAMYCIN [Concomitant]
     Active Substance: DOXORUBICIN HYDROCHLORIDE
     Dosage: 45 MILLIGRAM, IN THE FOURTH AND FIFTH SESSIONS
     Route: 065
  14. IFOSFAMIDE [Concomitant]
     Active Substance: IFOSFAMIDE
     Indication: Osteosarcoma
     Dosage: 5 GRAM, QD
     Route: 065
  15. IFOSFAMIDE [Concomitant]
     Active Substance: IFOSFAMIDE
     Dosage: 3.4 GRAM, QD, FOR DAYS?1 AND 2
     Route: 065
  16. IFOSFAMIDE [Concomitant]
     Active Substance: IFOSFAMIDE
     Dosage: 3 GRAM, QD, DAYS 3, 4, AND 5
     Route: 065
  17. POTASSIUM ASPARTATE [Concomitant]
     Active Substance: POTASSIUM ASPARTATE
     Indication: Quadriplegia
     Dosage: UNK
     Route: 065
  18. SODIUM PHOSPHATE [Concomitant]
     Active Substance: SODIUM PHOSPHATE
     Dosage: UNK
     Route: 065
  19. SODIUM CITRATE [Concomitant]
     Active Substance: SODIUM CITRATE
     Indication: Tubulointerstitial nephritis
     Dosage: UNK
     Route: 065

REACTIONS (2)
  - Anaphylactic shock [Unknown]
  - Off label use [Unknown]
